FAERS Safety Report 9604104 (Version 3)
Quarter: 2021Q1

REPORT INFORMATION
  Report Type: Report from Study
  Country: ES (occurrence: ES)
  Receive Date: 20131008
  Receipt Date: 20210329
  Transmission Date: 20210420
  Serious: Yes (Hospitalization)
  Sender: FDA-Public Use
  Company Number: ES-SHIRE-ALL1-2013-06743

PATIENT
  Age: 41 Year
  Sex: Male

DRUGS (9)
  1. ICATIBANT [Suspect]
     Active Substance: ICATIBANT ACETATE
     Indication: HEREDITARY ANGIOEDEMA
     Dosage: UNK, AS REQ^D
     Route: 058
     Dates: start: 20090907
  2. BERINERT [Concomitant]
     Active Substance: HUMAN C1-ESTERASE INHIBITOR
     Indication: HEREDITARY ANGIOEDEMA
     Dosage: 1000 MG, OTHER (96 HOURS)
     Route: 048
     Dates: start: 20110831
  3. RAPAMUNE [Suspect]
     Active Substance: SIROLIMUS
     Indication: IMMUNOSUPPRESSION
     Dosage: 1 MG, OTHER (24 HOURS)
     Route: 048
     Dates: start: 20110603
  4. SAPTRIM [Concomitant]
     Indication: ANTIBIOTIC THERAPY
     Dosage: 250 MG, OTHER (12 HOURS)
     Route: 048
     Dates: start: 20110603
  5. ESCITALOPRAM [Concomitant]
     Active Substance: ESCITALOPRAM OXALATE
     Indication: DEPRESSION
     Dosage: 10 MG, OTHER (24 HOURS)
     Route: 048
     Dates: start: 20110603
  6. LEXATIN [Concomitant]
     Indication: ANXIETY
     Dosage: 1.5 MG, OTHER (24 HOURS)
     Route: 048
     Dates: start: 20110603
  7. ICATIBANT [Suspect]
     Active Substance: ICATIBANT ACETATE
     Indication: HEREDITARY ANGIOEDEMA
     Dosage: UNK, AS REQ^D
     Route: 058
     Dates: start: 20090907
  8. PANTOPRAZOL [Concomitant]
     Active Substance: PANTOPRAZOLE SODIUM
     Indication: GASTRITIS PROPHYLAXIS
     Dosage: 40 MG, 1X/DAY:QD
     Route: 048
     Dates: start: 20110603
  9. URBASON [Suspect]
     Active Substance: METHYLPREDNISOLONE
     Indication: IMMUNOSUPPRESSION
     Dosage: 4 MG, 2X/DAY:BID (12 HOURS)
     Route: 048
     Dates: start: 20110603

REACTIONS (1)
  - Sepsis [Recovered/Resolved]

NARRATIVE: CASE EVENT DATE: 20110917
